FAERS Safety Report 5096899-9 (Version None)
Quarter: 2006Q3

REPORT INFORMATION
  Report Type: 
  Country: None (occurrence: None)
  Receive Date: 20060901
  Receipt Date: 20060901
  Transmission Date: 20061208
  Serious: Yes (Death)
  Sender: FDA-Public Use
  Company Number: None

PATIENT
  Age: 24 Year
  Sex: Male
  Weight: 81.6475 kg

DRUGS (1)
  1. METHADOSE [Suspect]
     Indication: BACK PAIN
     Dosage: 1-2 TABLETS 3 TIMES A DAY Q8 H PO
     Route: 048
     Dates: start: 20060609, end: 20060611

REACTIONS (1)
  - DRUG TOXICITY [None]
